FAERS Safety Report 8815059 (Version 2)
Quarter: 2012Q4

REPORT INFORMATION
  Report Type: 
  Country: US (occurrence: US)
  Receive Date: 20120928
  Receipt Date: 20121129
  Transmission Date: 20130627
  Serious: Yes (Other)
  Sender: FDA-Public Use
  Company Number: US-PFIZER INC-2012238931

PATIENT
  Age: 55 Year
  Sex: Female
  Weight: 57 kg

DRUGS (18)
  1. LYRICA [Suspect]
     Indication: MUSCLE CRAMPS
     Dosage: 75 mg, 2x/day
     Dates: start: 2011, end: 201111
  2. LYRICA [Suspect]
     Indication: JAW CRAMP
  3. LYRICA [Suspect]
     Indication: PAIN
  4. LYRICA [Suspect]
     Indication: IMMOBILE
  5. LYRICA [Suspect]
     Indication: STIFFNESS
  6. LYRICA [Suspect]
     Indication: CRAMPS
  7. PERCOCET [Concomitant]
     Indication: PAIN
     Dosage: UNK
  8. PERCOCET [Concomitant]
     Indication: IMMOBILE
  9. PERCOCET [Concomitant]
     Indication: NERVE DAMAGE
  10. VICODIN [Concomitant]
     Indication: PAIN
     Dosage: UNK
  11. VICODIN [Concomitant]
     Indication: IMMOBILE
  12. VICODIN [Concomitant]
     Indication: NERVE DAMAGE
  13. PERCODAN [Concomitant]
     Indication: PAIN
     Dosage: UNK
  14. PERCODAN [Concomitant]
     Indication: IMMOBILE
  15. PERCODAN [Concomitant]
     Indication: NERVE DAMAGE
  16. DARVOCET [Concomitant]
     Indication: PAIN
     Dosage: UNK
  17. DARVOCET [Concomitant]
     Indication: IMMOBILE
  18. DARVOCET [Concomitant]
     Indication: NERVE DAMAGE

REACTIONS (9)
  - Weight decreased [Unknown]
  - Withdrawal syndrome [Unknown]
  - Pain [Unknown]
  - Musculoskeletal stiffness [Unknown]
  - Influenza like illness [Unknown]
  - Malaise [Unknown]
  - Vomiting [Unknown]
  - Hyperhidrosis [Unknown]
  - Nervousness [Unknown]
